FAERS Safety Report 4404435-2 (Version None)
Quarter: 2004Q3

REPORT INFORMATION
  Report Type: 
  Country: None (occurrence: None)
  Receive Date: 20040720
  Receipt Date: 20040707
  Transmission Date: 20050211
  Serious: Yes (Death, Other)
  Sender: FDA-Public Use
  Company Number: 2004045603

PATIENT
  Age: 8 Year
  Sex: Male

DRUGS (2)
  1. ZIPRASIDONE (CAPS) (ZIPRASIDONE) [Suspect]
     Indication: ILL-DEFINED DISORDER
  2. BROMPHENIRAMINE [Suspect]
     Indication: ILL-DEFINED DISORDER

REACTIONS (3)
  - DRUG TOXICITY [None]
  - INJURY ASPHYXIATION [None]
  - VICTIM OF HOMICIDE [None]
